FAERS Safety Report 8956667 (Version 2)
Quarter: 2013Q2

REPORT INFORMATION
  Report Type: Spontaneous
  Country: US (occurrence: US)
  Receive Date: 20121210
  Receipt Date: 20130401
  Transmission Date: 20140414
  Serious: Yes (Life-Threatening, Hospitalization, Other)
  Sender: FDA-Public Use
  Company Number: US-BAYER-2012-125669

PATIENT
  Age: 46 Year
  Sex: Female
  Weight: 53 kg

DRUGS (18)
  1. YASMIN [Suspect]
     Dosage: UNK
  2. OCELLA [Suspect]
     Dosage: UNK
  3. YAZ [Suspect]
     Dosage: UNK
  4. FLEXERIL [Concomitant]
     Dosage: UNK UNK, PRN
  5. TENUATE [Concomitant]
  6. BUTALBITAL [Concomitant]
     Dosage: UNK UNK, PRN
  7. PERCOGESIC [Concomitant]
     Dosage: UNK UNK, PRN
  8. VALACICLOVIR [Concomitant]
  9. FIORICET [Concomitant]
     Dosage: UNK UNK, PRN
  10. PERCOGESIC EXTRA STRENGTH [Concomitant]
     Dosage: UNK UNK, PRN
  11. VICODIN [Concomitant]
     Dosage: UNK UNK, PRN
  12. MOTRIN [Concomitant]
     Dosage: UNK UNK, PRN
  13. CYCLOBENZAPRINE [Concomitant]
  14. HYDROQUINONE [Concomitant]
     Dosage: 4 %, UNK
  15. UNCODEABLE ^UNCLASSIFIABLE^ [Concomitant]
  16. METOPROLOL [Concomitant]
  17. LABETALOL [Concomitant]
  18. MOXIFLOXACIN [Concomitant]

REACTIONS (8)
  - Deep vein thrombosis [None]
  - Pain [None]
  - Injury [None]
  - Cerebrovascular accident [None]
  - Intracranial venous sinus thrombosis [Recovered/Resolved]
  - Pulmonary embolism [None]
  - Myocardial infarction [None]
  - Pain [None]
